FAERS Safety Report 6237938-9 (Version None)
Quarter: 2009Q2

REPORT INFORMATION
  Report Type: 
  Country: None (occurrence: None)
  Receive Date: 20090622
  Receipt Date: 20090611
  Transmission Date: 20091009
  Serious: Yes (Other)
  Sender: FDA-Public Use
  Company Number: US-BAYER-200921003NA

PATIENT
  Sex: Female

DRUGS (17)
  1. BETASERON [Suspect]
     Indication: SECONDARY PROGRESSIVE MULTIPLE SCLEROSIS
     Dosage: TOTAL DAILY DOSE: 8 MIU
     Route: 058
     Dates: start: 20000101
  2. TYSABRI [Concomitant]
     Dosage: 2 TREATMENTS
  3. BENICAR [Concomitant]
  4. OXYCODONE HYDROCHLORIDE NOS [Concomitant]
  5. AMBIEN [Concomitant]
  6. ACIPHEX [Concomitant]
  7. REQUIP [Concomitant]
  8. ZANAFLEX [Concomitant]
  9. PHENYTOIN SODIUM CAP [Concomitant]
  10. SEROQUEL [Concomitant]
  11. EFFEXOR [Concomitant]
  12. DILANTIN [Concomitant]
  13. XANAX [Concomitant]
  14. MIRTAZAPINE [Concomitant]
  15. LAMICTAL [Concomitant]
  16. AZOR [Concomitant]
     Dates: start: 20090401
  17. ANTIHYPERTENSIVE MEDICATION [Concomitant]
     Indication: HYPERTENSION

REACTIONS (9)
  - ARTHRALGIA [None]
  - BLOOD PRESSURE INCREASED [None]
  - CARPAL TUNNEL SYNDROME [None]
  - CENTRAL NERVOUS SYSTEM LESION [None]
  - CONVULSION [None]
  - MUSCULOSKELETAL STIFFNESS [None]
  - PAIN IN EXTREMITY [None]
  - POSTURE ABNORMAL [None]
  - VISUAL IMPAIRMENT [None]
